FAERS Safety Report 8011312-7 (Version None)
Quarter: 2011Q4

REPORT INFORMATION
  Report Type: 
  Country: None (occurrence: None)
  Receive Date: 20111228
  Receipt Date: 20111223
  Transmission Date: 20120403
  Serious: Yes (Other)
  Sender: FDA-Public Use
  Company Number: US-PFIZER INC-2011276207

PATIENT
  Sex: Female
  Weight: 54.422 kg

DRUGS (2)
  1. PREMPRO [Suspect]
     Indication: HORMONE THERAPY
     Dosage: 0.625/2.5 MG, 1X/DAY
     Route: 048
  2. ASPIRIN [Concomitant]
     Dosage: UNK

REACTIONS (2)
  - ARTHROPATHY [None]
  - DRUG INEFFECTIVE [None]
